FAERS Safety Report 8082544-7 (Version None)
Quarter: 2012Q1

REPORT INFORMATION
  Report Type: 
  Country: None (occurrence: None)
  Receive Date: 20120127
  Receipt Date: 20110218
  Transmission Date: 20120608
  Serious: No
  Sender: FDA-Public Use
  Company Number: US-ABBOTT-11P-163-0706725-00

PATIENT
  Sex: Female
  Weight: 54.48 kg

DRUGS (2)
  1. IMURAN [Concomitant]
     Indication: RHEUMATOID ARTHRITIS
  2. HUMIRA [Suspect]
     Indication: RHEUMATOID ARTHRITIS
     Dates: start: 20090101

REACTIONS (10)
  - OROPHARYNGEAL PAIN [None]
  - PYREXIA [None]
  - CHILLS [None]
  - IMPAIRED DRIVING ABILITY [None]
  - INJECTION SITE HAEMATOMA [None]
  - FATIGUE [None]
  - MUSCULOSKELETAL STIFFNESS [None]
  - INJECTION SITE SWELLING [None]
  - ASTHENIA [None]
  - ARTHRALGIA [None]
